FAERS Safety Report 19040868 (Version 1)
Quarter: 2021Q1

REPORT INFORMATION
  Report Type: Spontaneous
  Country: CN (occurrence: CN)
  Receive Date: 20210322
  Receipt Date: 20210322
  Transmission Date: 20210420
  Serious: Yes (Other)
  Sender: FDA-Public Use
  Company Number: CN-BAXTER-2021BAX005323

PATIENT
  Age: 50 Year
  Sex: Male
  Weight: 95 kg

DRUGS (4)
  1. 0.9% SODIUM CHLORIDE INJECTION [Suspect]
     Active Substance: SODIUM CHLORIDE
     Dosage: SOLU?MEDROL 500 MG + NS 250 ML
     Route: 041
     Dates: start: 20210220, end: 20210222
  2. ENDOXAN [Suspect]
     Active Substance: CYCLOPHOSPHAMIDE
     Indication: ENDOCRINE OPHTHALMOPATHY
     Dosage: PULSE THERAPY; ENDOXAN 0.2 G + NS 500 ML
     Route: 041
     Dates: start: 20210220, end: 20210222
  3. SOLU?MEDROL [Suspect]
     Active Substance: METHYLPREDNISOLONE SODIUM SUCCINATE
     Indication: ENDOCRINE OPHTHALMOPATHY
     Dosage: PULSE THERAPY; SOLU?MEDROL 500 MG + NS 250 ML
     Route: 041
     Dates: start: 20210220, end: 20210222
  4. 0.9% SODIUM CHLORIDE INJECTION [Suspect]
     Active Substance: SODIUM CHLORIDE
     Indication: MEDICATION DILUTION
     Dosage: PULSE THERAPY; ENDOXAN 0.2 G + NS 500 ML
     Route: 041
     Dates: start: 20210220, end: 20210222

REACTIONS (1)
  - Hypokalaemia [Recovered/Resolved]

NARRATIVE: CASE EVENT DATE: 20210222
